FAERS Safety Report 15791530 (Version 1)
Quarter: 2019Q1

REPORT INFORMATION
  Report Type: Spontaneous
  Country: US (occurrence: US)
  Receive Date: 20190104
  Receipt Date: 20190104
  Transmission Date: 20190417
  Serious: No
  Sender: FDA-Public Use
  Company Number: US-GLAXOSMITHKLINE-US2018231045

PATIENT
  Sex: Female

DRUGS (1)
  1. ATOVAQUONE + PROGUANIL HYDROCHLORIDE FILM-COATED TABLET [Suspect]
     Active Substance: ATOVAQUONE\PROGUANIL HYDROCHLORIDE
     Indication: PRODUCT USED FOR UNKNOWN INDICATION
     Dosage: UNK UNK, U

REACTIONS (1)
  - Product storage error [Unknown]
